FAERS Safety Report 26180409 (Version 1)
Quarter: 2025Q4

REPORT INFORMATION
  Report Type: Spontaneous
  Country: RS (occurrence: RS)
  Receive Date: 20251219
  Receipt Date: 20251219
  Transmission Date: 20260117
  Serious: Yes (Other)
  Sender: ALEXION PHARMACEUTICALS
  Company Number: RS-ASTRAZENECA-202512EEA004840RS

PATIENT
  Sex: Female

DRUGS (1)
  1. LYNPARZA [Suspect]
     Active Substance: OLAPARIB
     Indication: Ovarian cancer
     Dosage: 500 MG
     Route: 065

REACTIONS (4)
  - Thrombocytopenia [Unknown]
  - Brain oedema [Unknown]
  - Peripheral swelling [Unknown]
  - Rash [Unknown]
